FAERS Safety Report 17276633 (Version 2)
Quarter: 2020Q1

REPORT INFORMATION
  Report Type: Report from Study
  Country: CO (occurrence: CO)
  Receive Date: 20200116
  Receipt Date: 20200320
  Transmission Date: 20200409
  Serious: Yes (Hospitalization, Other)
  Sender: FDA-Public Use
  Company Number: NVSC2020CO007520

PATIENT
  Sex: Male

DRUGS (2)
  1. REVOLADE [Suspect]
     Active Substance: ELTROMBOPAG
     Dosage: 25 MG, QD
     Route: 048
  2. REVOLADE [Suspect]
     Active Substance: ELTROMBOPAG
     Indication: IMMUNE THROMBOCYTOPENIC PURPURA
     Dosage: 25 MG, Q12H
     Route: 048

REACTIONS (9)
  - Eating disorder [Unknown]
  - Pulmonary thrombosis [Unknown]
  - Multi-organ disorder [Unknown]
  - Back pain [Unknown]
  - Dyspnoea [Unknown]
  - General physical health deterioration [Unknown]
  - Drug ineffective [Unknown]
  - Spinal fracture [Unknown]
  - Sjogren^s syndrome [Unknown]
